FAERS Safety Report 4347462-6 (Version None)
Quarter: 2004Q2

REPORT INFORMATION
  Report Type: 
  Country: None (occurrence: None)
  Receive Date: 20040426
  Receipt Date: 20040426
  Transmission Date: 20050107
  Serious: Yes (Other)
  Sender: FDA-Public Use
  Company Number: None

PATIENT
  Sex: Male
  Weight: 122.4712 kg

DRUGS (2)
  1. LEXAPRO [Suspect]
     Indication: ANXIETY
     Dosage: 5 MG DAILY
     Dates: start: 20040415, end: 20040416
  2. LEXAPRO [Suspect]
     Indication: ANXIETY
     Dosage: 5 MG DAILY
     Dates: start: 20040423, end: 20040424

REACTIONS (5)
  - AGITATION [None]
  - FATIGUE [None]
  - NAUSEA [None]
  - SUICIDAL IDEATION [None]
  - TENSION HEADACHE [None]
